FAERS Safety Report 7427131-6 (Version None)
Quarter: 2011Q2

REPORT INFORMATION
  Report Type: 
  Country: None (occurrence: None)
  Receive Date: 20110420
  Receipt Date: 20110109
  Transmission Date: 20111010
  Serious: No
  Sender: FDA-Public Use
  Company Number: US-TEVA-262837USA

PATIENT
  Sex: Female
  Weight: 50.848 kg

DRUGS (1)
  1. PLAN B ONE-STEP [Suspect]
     Indication: POST COITAL CONTRACEPTION
     Dosage: 1.5 MILLIGRAM;
     Route: 048
     Dates: start: 20110108, end: 20110108

REACTIONS (4)
  - HEADACHE [None]
  - DYSURIA [None]
  - HAEMATURIA [None]
  - VULVOVAGINAL PRURITUS [None]
